FAERS Safety Report 17624515 (Version 1)
Quarter: 2020Q2

REPORT INFORMATION
  Report Type: Report from Study
  Country: US (occurrence: US)
  Receive Date: 20200403
  Receipt Date: 20200403
  Transmission Date: 20200713
  Serious: No
  Sender: FDA-Public Use
  Company Number: US-BIOVITRUM-2019US2786

PATIENT
  Sex: Female

DRUGS (2)
  1. LEXAPRO [Concomitant]
     Active Substance: ESCITALOPRAM OXALATE
     Indication: PRODUCT USED FOR UNKNOWN INDICATION
  2. ORFADIN [Suspect]
     Active Substance: NITISINONE
     Indication: AMINO ACID METABOLISM DISORDER
     Route: 048
     Dates: start: 20190629

REACTIONS (3)
  - Nervousness [Unknown]
  - Product dose omission [Unknown]
  - Dizziness [Unknown]
